FAERS Safety Report 22520706 (Version 1)
Quarter: 2023Q2

REPORT INFORMATION
  Report Type: Spontaneous
  Country: US (occurrence: None)
  Receive Date: 20230604
  Receipt Date: 20230604
  Transmission Date: 20230722
  Serious: Yes (Disabling)
  Sender: FDA-Public Use
  Company Number: None

PATIENT
  Age: 69 Year
  Sex: Female
  Weight: 35.24 kg

DRUGS (8)
  1. MEROPENEM [Suspect]
     Active Substance: MEROPENEM
     Indication: Bronchiectasis
     Dosage: OTHER QUANTITY : 1 1 GM IN NS 100 ML;?FREQUENCY : EVERY 12 HOURS;?
     Route: 042
     Dates: start: 20230519, end: 20230602
  2. SYMBICORT [Concomitant]
     Active Substance: BUDESONIDE\FORMOTEROL FUMARATE DIHYDRATE
  3. XOPENEX [Concomitant]
     Active Substance: LEVALBUTEROL HYDROCHLORIDE
  4. OLOPATADINE [Concomitant]
     Active Substance: OLOPATADINE
  5. SINGULAIR [Concomitant]
     Active Substance: MONTELUKAST SODIUM
  6. CELEBREX [Concomitant]
     Active Substance: CELECOXIB
  7. Flonase CA++ [Concomitant]
  8. VITAMINS [Concomitant]
     Active Substance: VITAMINS

REACTIONS (2)
  - Eustachian tube dysfunction [None]
  - Tinnitus [None]

NARRATIVE: CASE EVENT DATE: 20230522
